FAERS Safety Report 20862770 (Version 1)
Quarter: 2022Q2

REPORT INFORMATION
  Report Type: Spontaneous
  Country: US (occurrence: None)
  Receive Date: 20220523
  Receipt Date: 20220523
  Transmission Date: 20220721
  Serious: Yes (Hospitalization)
  Sender: FDA-Public Use
  Company Number: None

PATIENT
  Age: 87 Year
  Sex: Male

DRUGS (1)
  1. EMPAGLIFLOZIN [Suspect]
     Active Substance: EMPAGLIFLOZIN
     Indication: Diabetes mellitus
     Route: 048
     Dates: start: 20220218, end: 20220414

REACTIONS (5)
  - Hyperglycaemia [None]
  - Diabetic ketoacidosis [None]
  - Skin abrasion [None]
  - Eczema [None]
  - Pruritus [None]

NARRATIVE: CASE EVENT DATE: 20220414
